FAERS Safety Report 17105981 (Version 1)
Quarter: 2019Q4

REPORT INFORMATION
  Report Type: Spontaneous
  Country: SE (occurrence: SE)
  Receive Date: 20191203
  Receipt Date: 20191203
  Transmission Date: 20200122
  Serious: Yes (Death, Other)
  Sender: FDA-Public Use
  Company Number: SE-GLAXOSMITHKLINE-SE2019207882

PATIENT
  Age: 73 Year
  Sex: Female

DRUGS (1)
  1. TRELEGY ELLIPTA [Suspect]
     Active Substance: FLUTICASONE FUROATE\UMECLIDINIUM BROMIDE\VILANTEROL TRIFENATATE
     Indication: ASTHMA
     Dosage: 2 PUFF(S), QD
     Route: 055

REACTIONS (13)
  - Condition aggravated [Unknown]
  - Blood pressure increased [Unknown]
  - Nausea [Unknown]
  - Urine output decreased [Unknown]
  - Product prescribing error [Unknown]
  - Abdominal distension [Unknown]
  - Weight increased [Unknown]
  - Electrocardiogram abnormal [Unknown]
  - Urine analysis abnormal [Unknown]
  - Product use in unapproved indication [Unknown]
  - Death [Fatal]
  - Headache [Unknown]
  - Lung disorder [Recovering/Resolving]
